FAERS Safety Report 24577041 (Version 3)
Quarter: 2024Q4

REPORT INFORMATION
  Report Type: Spontaneous
  Country: DE (occurrence: DE)
  Receive Date: 20241104
  Receipt Date: 20241210
  Transmission Date: 20250115
  Serious: Yes (Hospitalization)
  Sender: ABBVIE
  Company Number: DE-ABBVIE-5985839

PATIENT
  Age: 82 Year
  Sex: Female

DRUGS (8)
  1. FOSCARBIDOPA\FOSLEVODOPA [Suspect]
     Active Substance: FOSCARBIDOPA\FOSLEVODOPA
     Indication: Parkinsonism
     Dosage: LAST ADMIN DATE: 2024
     Route: 058
     Dates: start: 20240923
  2. FOSCARBIDOPA\FOSLEVODOPA [Suspect]
     Active Substance: FOSCARBIDOPA\FOSLEVODOPA
     Dosage: DOSE: 0.33 ML/H?FREQUENCY OF USE: 06. 00-22:00
     Route: 058
     Dates: start: 20241010
  3. FOSCARBIDOPA\FOSLEVODOPA [Suspect]
     Active Substance: FOSCARBIDOPA\FOSLEVODOPA
     Dosage: DOSE: 0.18 ML/H FREQUENCY OF USE: 22:00-06:00
     Route: 058
  4. CANDESARTAN [Concomitant]
     Active Substance: CANDESARTAN
     Indication: Hypertension
     Dosage: FREQUENCY: 0-0-0-1
     Route: 048
  5. PANTOPRAZOLE [Concomitant]
     Active Substance: PANTOPRAZOLE
     Indication: Gastrooesophageal reflux disease
     Route: 048
  6. QUETIAPINE [Concomitant]
     Active Substance: QUETIAPINE
     Indication: Sleep disorder
     Route: 048
  7. TROSPIUM [Concomitant]
     Active Substance: TROSPIUM
     Indication: Urge incontinence
     Route: 048
  8. CITALOPRAM [Concomitant]
     Active Substance: CITALOPRAM
     Indication: Depression
     Route: 065

REACTIONS (4)
  - Cellulitis [Recovered/Resolved]
  - Puncture site cellulitis [Recovered/Resolved]
  - Infusion site induration [Recovered/Resolved]
  - Infusion site pain [Recovered/Resolved]

NARRATIVE: CASE EVENT DATE: 20241022
